FAERS Safety Report 10144863 (Version 1)
Quarter: 2014Q2

REPORT INFORMATION
  Report Type: Spontaneous
  Country: US (occurrence: US)
  Receive Date: 20140430
  Receipt Date: 20140430
  Transmission Date: 20141212
  Serious: Yes (Other)
  Sender: FDA-Public Use
  Company Number: US-SA-2014SA020807

PATIENT
  Sex: Female

DRUGS (1)
  1. LOVENOX [Suspect]
     Route: 065
     Dates: end: 201401

REACTIONS (2)
  - Gastric haemorrhage [Recovered/Resolved]
  - Blood disorder [Recovered/Resolved]
